FAERS Safety Report 10812216 (Version 2)
Quarter: 2016Q3

REPORT INFORMATION
  Report Type: Report from Study
  Country: FR (occurrence: FR)
  Receive Date: 20150218
  Receipt Date: 20160712
  Transmission Date: 20161109
  Serious: Yes (Death, Hospitalization, Other)
  Sender: FDA-Public Use
  Company Number: FR-ROCHE-1538213

PATIENT
  Sex: Female

DRUGS (5)
  1. METHOTREXATE. [Concomitant]
     Active Substance: METHOTREXATE
     Route: 065
  2. CORTANCYL [Concomitant]
     Active Substance: PREDNISONE
     Route: 065
     Dates: start: 20080305
  3. CORTANCYL [Concomitant]
     Active Substance: PREDNISONE
     Route: 065
  4. METHOTREXATE. [Concomitant]
     Active Substance: METHOTREXATE
     Indication: RHEUMATOID ARTHRITIS
     Route: 065
     Dates: start: 20080305
  5. RITUXIMAB [Suspect]
     Active Substance: RITUXIMAB
     Indication: RHEUMATOID ARTHRITIS
     Dosage: ON 05/MAR/2008 (DAY 15), 24/FEB/2009, 08/SEP/2009, 29/SEP/2009 THE PATIENT RECEIEVED RITUXIMAB INFUS
     Route: 041
     Dates: start: 20080219, end: 20110225

REACTIONS (17)
  - Headache [Recovered/Resolved]
  - Abasia [Not Recovered/Not Resolved]
  - Fall [Unknown]
  - Acute kidney injury [Recovered/Resolved]
  - Pain in extremity [Unknown]
  - Peripheral artery stenosis [Not Recovered/Not Resolved]
  - Necrosis [Not Recovered/Not Resolved]
  - Urinary tract infection [Unknown]
  - Angiodermatitis [Not Recovered/Not Resolved]
  - Spinal compression fracture [Not Recovered/Not Resolved]
  - Gastric ulcer [Unknown]
  - Hypertension [Unknown]
  - Postoperative wound infection [Unknown]
  - Septic shock [Fatal]
  - Leg amputation [Unknown]
  - Skin infection [Recovered/Resolved]
  - Confusional state [Unknown]

NARRATIVE: CASE EVENT DATE: 20080220
